FAERS Safety Report 23496579 (Version 1)
Quarter: 2024Q1

REPORT INFORMATION
  Report Type: Spontaneous
  Country: US (occurrence: None)
  Receive Date: 20240207
  Receipt Date: 20240207
  Transmission Date: 20240410
  Serious: Yes (Other)
  Sender: FDA-Public Use
  Company Number: None

PATIENT
  Age: 78 Year
  Sex: Female
  Weight: 64 kg

DRUGS (3)
  1. LENALIDOMIDE [Suspect]
     Active Substance: LENALIDOMIDE
     Dosage: FREQUENCY : DAILY;?
     Route: 048
     Dates: start: 20240125, end: 20240125
  2. DEXAMETHASONE [Suspect]
     Active Substance: DEXAMETHASONE
  3. VELCADE [Suspect]
     Active Substance: BORTEZOMIB

REACTIONS (2)
  - Supraventricular tachycardia [None]
  - Supraventricular tachycardia [None]

NARRATIVE: CASE EVENT DATE: 20240125
